FAERS Safety Report 4692289-9 (Version None)
Quarter: 2005Q2

REPORT INFORMATION
  Report Type: 
  Country: None (occurrence: None)
  Receive Date: 20050616
  Receipt Date: 20050530
  Transmission Date: 20051028
  Serious: Yes (Other)
  Sender: FDA-Public Use
  Company Number: 0510010

PATIENT
  Sex: Male
  Weight: 0.4536 kg

DRUGS (5)
  1. ORFADIN [Suspect]
     Indication: TYROSINAEMIA
     Dosage: 5 MILLIGRAM TWICE DAILY
     Dates: start: 20050509
  2. VITAMINE K [Concomitant]
  3. FUROSEMIDE [Concomitant]
  4. CEFOTAXINA [Concomitant]
  5. RANITIDINE [Concomitant]

REACTIONS (2)
  - DERMATITIS ATOPIC [None]
  - LIP DISORDER [None]
